FAERS Safety Report 9335087 (Version 1)
Quarter: 2013Q2

REPORT INFORMATION
  Report Type: Spontaneous
  Country: US (occurrence: US)
  Receive Date: 20130606
  Receipt Date: 20130606
  Transmission Date: 20140414
  Serious: No
  Sender: FDA-Public Use
  Company Number: US-PFIZER INC-2013168907

PATIENT
  Age: 52 Year
  Sex: Female
  Weight: 69.39 kg

DRUGS (1)
  1. LEVOXYL [Suspect]
     Indication: HYPOTHYROIDISM
     Dosage: 112 UG, UNK
     Route: 048
     Dates: end: 2013

REACTIONS (2)
  - Blood thyroid stimulating hormone increased [Unknown]
  - Fatigue [Unknown]
